FAERS Safety Report 9102547 (Version 2)
Quarter: 2013Q2

REPORT INFORMATION
  Report Type: Spontaneous
  Country: US (occurrence: US)
  Receive Date: 20130218
  Receipt Date: 20130510
  Transmission Date: 20140414
  Serious: Yes (Hospitalization, Other)
  Sender: FDA-Public Use
  Company Number: US-BAYER-2013-018574

PATIENT
  Age: 32 Year
  Sex: Female
  Weight: 75.3 kg

DRUGS (20)
  1. YASMIN [Suspect]
     Dosage: UNK
     Dates: start: 2004, end: 2005
  2. YAZ [Suspect]
     Dosage: UNK
     Dates: start: 2004, end: 2005
  3. OCELLA [Suspect]
     Dosage: UNK
     Dates: start: 2004, end: 2005
  4. MAGNESIUM [Concomitant]
     Dosage: 2 G/HR
  5. BETAMETHASONE [Concomitant]
  6. INDOCIN [Concomitant]
  7. TERBUTALINE [Concomitant]
  8. COLACE [Concomitant]
  9. PRENATAL VITAMINS [Concomitant]
  10. CALCIUM [Concomitant]
  11. IRON [Concomitant]
  12. PROCARDIA [Concomitant]
     Indication: UTERINE DISORDER
     Dosage: 60 MG, UNK
  13. HEMABATE [Concomitant]
     Indication: UTERINE ATONY
     Dosage: UNK
     Dates: start: 20080426
  14. PITOCIN [Concomitant]
     Indication: UTERINE ATONY
     Dosage: UNK
     Dates: start: 20080426
  15. GENTAMICIN [Concomitant]
     Indication: URINARY TRACT INFECTION
     Dosage: UNK
     Dates: start: 20080428
  16. CLINDAMYCIN [Concomitant]
     Indication: URINARY TRACT INFECTION
     Dosage: UNK
     Dates: start: 20080428
  17. PERCOCET [OXYCODONE HYDROCHLORIDE,PARACETAMOL] [Concomitant]
     Dosage: 5-325 MG
  18. MOTRIN [Concomitant]
     Dosage: 600 MG, UNK
  19. NITROFURANT MACRO [Concomitant]
     Dosage: 100 MG, UNK
  20. LOVENOX [Concomitant]

REACTIONS (10)
  - Deep vein thrombosis [Recovered/Resolved]
  - Pulmonary embolism [None]
  - Thrombosis [None]
  - Injury [None]
  - Pain [None]
  - Emotional distress [None]
  - General physical health deterioration [None]
  - Anxiety [None]
  - Abdominal pain [None]
  - Pain [None]
